FAERS Safety Report 23544708 (Version 1)
Quarter: 2024Q1

REPORT INFORMATION
  Report Type: Spontaneous
  Country: US (occurrence: US)
  Receive Date: 20240220
  Receipt Date: 20240220
  Transmission Date: 20240410
  Serious: No
  Sender: FDA-Public Use
  Company Number: US-PFIZER INC-PV202300005100

PATIENT
  Age: 75 Year
  Sex: Female

DRUGS (1)
  1. XELJANZ XR [Suspect]
     Active Substance: TOFACITINIB CITRATE
     Dosage: 1 TABLET ONCE DAILY
     Route: 048

REACTIONS (5)
  - Blood pressure abnormal [Unknown]
  - Rhinorrhoea [Unknown]
  - Pain [Unknown]
  - Rash [Unknown]
  - Condition aggravated [Unknown]
